FAERS Safety Report 11897580 (Version 1)
Quarter: 2016Q1

REPORT INFORMATION
  Report Type: Spontaneous
  Country: US (occurrence: US)
  Receive Date: 20160108
  Receipt Date: 20160108
  Transmission Date: 20160526
  Serious: Yes (Other)
  Sender: FDA-Public Use
  Company Number: US-BEH-2015057350

PATIENT
  Sex: Female
  Weight: 66 kg

DRUGS (10)
  1. METHOCATBAMOL [Concomitant]
  2. BUMETANIDE. [Concomitant]
     Active Substance: BUMETANIDE
  3. ZOMETA [Concomitant]
     Active Substance: ZOLEDRONIC ACID
  4. HIZENTRA [Suspect]
     Active Substance: HUMAN IMMUNOGLOBULIN G
     Indication: PRODUCT USED FOR UNKNOWN INDICATION
     Route: 058
     Dates: start: 20140210
  5. MULTIVITAMIN [Concomitant]
     Active Substance: VITAMINS
  6. LYRICA [Concomitant]
     Active Substance: PREGABALIN
  7. POTASSIUM [Concomitant]
     Active Substance: POTASSIUM
  8. PREDNISONE. [Concomitant]
     Active Substance: PREDNISONE
  9. RITALIN [Concomitant]
     Active Substance: METHYLPHENIDATE HYDROCHLORIDE
  10. CALCIUM [Concomitant]
     Active Substance: CALCIUM

REACTIONS (1)
  - Cellulitis [Unknown]
